FAERS Safety Report 18752417 (Version 1)
Quarter: 2021Q1

REPORT INFORMATION
  Report Type: Report from Study
  Country: US (occurrence: US)
  Receive Date: 20210118
  Receipt Date: 20210118
  Transmission Date: 20210419
  Serious: Yes (Other)
  Sender: FDA-Public Use
  Company Number: US-TAKEDA-US202020903

PATIENT
  Age: 28 Year
  Sex: Female

DRUGS (7)
  1. 643 (LANADELUMAB) [Suspect]
     Active Substance: LANADELUMAB
     Indication: HEREDITARY ANGIOEDEMA
     Dosage: 300 MILLIGRAM, Q2WEEKS
     Route: 058
     Dates: start: 20200427
  2. 643 (LANADELUMAB) [Suspect]
     Active Substance: LANADELUMAB
     Dosage: 300 MILLIGRAM, Q2WEEKS
     Route: 058
     Dates: start: 20200428
  3. ICATIBANT [Suspect]
     Active Substance: ICATIBANT ACETATE
     Indication: SWELLING
     Dosage: 3 MILLILITER, AS REQD
     Route: 058
     Dates: start: 20150313
  4. ICATIBANT [Suspect]
     Active Substance: ICATIBANT ACETATE
     Indication: SWELLING
     Dosage: 3 MILLILITER, AS REQD
     Route: 058
     Dates: start: 20150313
  5. ICATIBANT [Suspect]
     Active Substance: ICATIBANT ACETATE
     Indication: HEREDITARY ANGIOEDEMA
  6. ICATIBANT [Suspect]
     Active Substance: ICATIBANT ACETATE
     Indication: HEREDITARY ANGIOEDEMA
  7. 643 (LANADELUMAB) [Suspect]
     Active Substance: LANADELUMAB
     Dosage: 300 MILLIGRAM, Q2WEEKS
     Route: 058
     Dates: start: 20200429

REACTIONS (6)
  - Muscle spasms [Unknown]
  - Hereditary angioedema [Recovered/Resolved]
  - Product dose omission issue [Recovered/Resolved]
  - Food poisoning [Unknown]
  - Tooth injury [Unknown]
  - Pregnancy [Unknown]

NARRATIVE: CASE EVENT DATE: 20200729
